FAERS Safety Report 5125881-8 (Version None)
Quarter: 2006Q4

REPORT INFORMATION
  Report Type: 
  Country: None (occurrence: None)
  Receive Date: 20061012
  Receipt Date: 20060803
  Transmission Date: 20070319
  Serious: Yes (Hospitalization)
  Sender: FDA-Public Use
  Company Number: IN-GLAXOSMITHKLINE-B0433544A

PATIENT
  Age: 15 Year
  Sex: Male

DRUGS (3)
  1. LAMOTRIGINE [Suspect]
     Route: 065
     Dates: start: 20050101
  2. LITHIUM CARBONATE [Concomitant]
     Indication: DEPRESSION
     Route: 048
  3. OLANZAPINE [Concomitant]
     Indication: DEPRESSION
     Route: 048

REACTIONS (6)
  - AGGRESSION [None]
  - DELUSION OF GRANDEUR [None]
  - INSOMNIA [None]
  - LOGORRHOEA [None]
  - MANIA [None]
  - PSYCHOMOTOR HYPERACTIVITY [None]
